FAERS Safety Report 8157207-X (Version None)
Quarter: 2012Q1

REPORT INFORMATION
  Report Type: 
  Country: None (occurrence: None)
  Receive Date: 20120222
  Receipt Date: 20120215
  Transmission Date: 20120608
  Serious: Yes (Disabling)
  Sender: FDA-Public Use
  Company Number: GB-ROCHE-1040879

PATIENT
  Sex: Female

DRUGS (11)
  1. LUCENTIS [Suspect]
     Indication: PRODUCT USED FOR UNKNOWN INDICATION
  2. ALPHAGAN [Concomitant]
     Dates: start: 20070503
  3. CYANOCOBALAMIN [Concomitant]
     Dates: start: 20090801
  4. LEVOTHYROXINE SODIUM [Concomitant]
     Dates: start: 20090801
  5. HYPROMELLOSE [Concomitant]
  6. METFORMIN HCL [Concomitant]
     Dates: start: 20090322
  7. XALATAN [Concomitant]
     Dates: start: 20111102
  8. CANDESARTAN CILEXETIL [Concomitant]
     Dates: start: 20021217
  9. COSOPT [Concomitant]
     Dates: start: 20080428
  10. ASPIRIN [Concomitant]
     Dates: start: 20070606
  11. SIMVASTATIN [Concomitant]
     Dates: start: 20040831

REACTIONS (5)
  - FATIGUE [None]
  - DECREASED APPETITE [None]
  - MALAISE [None]
  - PAIN IN EXTREMITY [None]
  - EYE PAIN [None]
